FAERS Safety Report 21453581 (Version 1)
Quarter: 2022Q4

REPORT INFORMATION
  Report Type: Spontaneous
  Country: US (occurrence: US)
  Receive Date: 20221013
  Receipt Date: 20221013
  Transmission Date: 20230113
  Serious: No
  Sender: FDA-Public Use
  Company Number: US-BRISTOL-MYERS SQUIBB COMPANY-2022-117028

PATIENT
  Age: 66 Year
  Sex: Female

DRUGS (16)
  1. REVLIMID [Suspect]
     Active Substance: LENALIDOMIDE
     Indication: Myelodysplastic syndrome
     Route: 048
     Dates: start: 20191217
  2. ASPIRIN LOW CHW 81MG [Concomitant]
     Indication: Product used for unknown indication
     Route: 065
  3. CALCIUM CARB CHW 500MG [Concomitant]
     Indication: Product used for unknown indication
     Route: 065
  4. CRANBERRY CAP 405MG [Concomitant]
     Indication: Product used for unknown indication
     Route: 065
  5. FISH OIL CAP 1000MG [Concomitant]
     Indication: Product used for unknown indication
     Route: 065
  6. FLUOXETINE TAB 20MG [Concomitant]
     Indication: Product used for unknown indication
     Route: 065
  7. FOLATE TAB 400MCG [Concomitant]
     Indication: Product used for unknown indication
     Route: 065
  8. GABAPENTIN [Concomitant]
     Active Substance: GABAPENTIN
     Indication: Product used for unknown indication
     Route: 065
  9. GABAPENTIN TAB 600MG [Concomitant]
     Indication: Product used for unknown indication
     Route: 065
  10. HYDROCHLOROT CAP 12.5MG [Concomitant]
     Indication: Product used for unknown indication
     Route: 065
  11. ROPINIROLE TAB 0.25MG [Concomitant]
     Indication: Product used for unknown indication
     Route: 065
  12. TRAZODONE [Concomitant]
     Active Substance: TRAZODONE HYDROCHLORIDE
     Indication: Product used for unknown indication
     Route: 065
  13. VITAMIN B-12 TAB 1000MCG [Concomitant]
     Indication: Product used for unknown indication
     Route: 065
  14. VITAMIN C CHW 500MG [Concomitant]
     Indication: Product used for unknown indication
     Route: 065
  15. XARELTO [Concomitant]
     Active Substance: RIVAROXABAN
     Indication: Product used for unknown indication
     Route: 065
  16. ZINC GLUCON TAB 50MG [Concomitant]
     Indication: Product used for unknown indication
     Route: 065

REACTIONS (1)
  - Diarrhoea [Unknown]
